FAERS Safety Report 8441684-0 (Version None)
Quarter: 2012Q2

REPORT INFORMATION
  Report Type: 
  Country: None (occurrence: None)
  Receive Date: 20120615
  Receipt Date: 20120605
  Transmission Date: 20120825
  Serious: Yes (Hospitalization)
  Sender: FDA-Public Use
  Company Number: US-JNJFOC-20120600204

PATIENT
  Sex: Male
  Weight: 55 kg

DRUGS (5)
  1. REMICADE [Suspect]
     Indication: INFLAMMATORY BOWEL DISEASE
     Route: 042
     Dates: start: 20100324
  2. ACETAMINOPHEN [Concomitant]
     Indication: PREMEDICATION
     Dates: start: 20120125
  3. CORTICOSTEROID [Concomitant]
     Indication: PREMEDICATION
     Dates: start: 20120125
  4. REMICADE [Suspect]
     Route: 042
     Dates: start: 20120125
  5. ANTIHISTAMINE [Concomitant]
     Indication: PREMEDICATION
     Dates: start: 20120125

REACTIONS (1)
  - APPENDICITIS PERFORATED [None]
